FAERS Safety Report 25520907 (Version 1)
Quarter: 2025Q3

REPORT INFORMATION
  Report Type: Report from Study
  Country: KR (occurrence: KR)
  Receive Date: 20250705
  Receipt Date: 20250705
  Transmission Date: 20251020
  Serious: Yes (Other)
  Sender: ROCHE
  Company Number: US-ROCHE-10000324550

PATIENT

DRUGS (3)
  1. BEVACIZUMAB [Suspect]
     Active Substance: BEVACIZUMAB
     Indication: Colorectal cancer metastatic
     Route: 042
  2. TRIFLURIDINE [Suspect]
     Active Substance: TRIFLURIDINE
     Indication: Colorectal cancer metastatic
     Dosage: ON DAYS 1-5 28-DAY CYCLE
     Route: 048
  3. TIPIRACIL [Suspect]
     Active Substance: TIPIRACIL
     Indication: Colorectal cancer metastatic
     Dosage: AND 8-12 OF A 28 CYCLE
     Route: 048

REACTIONS (8)
  - Neutropenia [Unknown]
  - Anaemia [Unknown]
  - Nausea [Unknown]
  - Diarrhoea [Unknown]
  - Vomiting [Unknown]
  - Fatigue [Unknown]
  - Febrile neutropenia [Unknown]
  - Thrombocytopenia [Unknown]
